FAERS Safety Report 8823894 (Version 6)
Quarter: 2014Q3

REPORT INFORMATION
  Report Type: Spontaneous
  Country: US (occurrence: US)
  Receive Date: 20121003
  Receipt Date: 20140806
  Transmission Date: 20150326
  Serious: Yes (Hospitalization, Other)
  Sender: FDA-Public Use
  Company Number: US-009507513-2011SP057243

PATIENT
  Sex: Female
  Weight: 113.38 kg

DRUGS (1)
  1. NUVARING [Suspect]
     Active Substance: ETHINYL ESTRADIOL\ETONOGESTREL
     Indication: CONTRACEPTION
     Dosage: UNK
     Route: 067
     Dates: end: 20091202

REACTIONS (40)
  - Aortic embolus [Unknown]
  - Chest pain [Unknown]
  - Post-traumatic stress disorder [Unknown]
  - Appendicitis [Unknown]
  - Hilar lymphadenopathy [Unknown]
  - Deep vein thrombosis [Unknown]
  - Anxiety [Unknown]
  - Treatment noncompliance [Unknown]
  - Hypoaesthesia [Unknown]
  - Hepatic steatosis [Unknown]
  - Diabetes mellitus [Unknown]
  - Haemorrhage [Recovered/Resolved]
  - Rectal haemorrhage [Unknown]
  - Implantable defibrillator insertion [Unknown]
  - Pleurisy [Unknown]
  - Pleuritic pain [Unknown]
  - Migraine [Unknown]
  - Glucose tolerance impaired [Unknown]
  - Fibrin D dimer increased [Unknown]
  - Irritability [Unknown]
  - Furuncle [Unknown]
  - Haemorrhoids [Unknown]
  - Intracranial pressure increased [Unknown]
  - Vena cava filter insertion [Unknown]
  - Chest pain [Unknown]
  - Tension headache [Unknown]
  - Lymphoma [Unknown]
  - Metastatic neoplasm [Unknown]
  - Depression [Unknown]
  - Vein disorder [Unknown]
  - Pulmonary embolism [Recovered/Resolved]
  - Dyspnoea [Unknown]
  - Viral upper respiratory tract infection [Unknown]
  - Anticoagulation drug level below therapeutic [Not Recovered/Not Resolved]
  - Catheter removal [Unknown]
  - Pancreatic disorder [Unknown]
  - Varicose vein [Unknown]
  - Appendicectomy [Unknown]
  - Adenoidectomy [Unknown]
  - Sarcoidosis [Unknown]

NARRATIVE: CASE EVENT DATE: 200902
